FAERS Safety Report 7510738-5 (Version None)
Quarter: 2011Q2

REPORT INFORMATION
  Report Type: 
  Country: None (occurrence: None)
  Receive Date: 20110530
  Receipt Date: 20110520
  Transmission Date: 20111010
  Serious: Yes (Other)
  Sender: FDA-Public Use
  Company Number: PHBS2011NL00469

PATIENT
  Sex: Male

DRUGS (6)
  1. ONDANSETRON [Concomitant]
  2. BETA BLOCKING AGENTS [Concomitant]
  3. ZOMETA [Suspect]
     Dosage: 4 MG/5 ML ONCE EVERY 28 DAYS
     Route: 042
     Dates: start: 20100921
  4. TOPOTECAN [Concomitant]
  5. ACETAMINOPHEN [Concomitant]
  6. PAZOPANIB [Concomitant]

REACTIONS (5)
  - NASAL CONGESTION [None]
  - PNEUMONIA [None]
  - ASTHENIA [None]
  - FATIGUE [None]
  - PALLOR [None]
